FAERS Safety Report 9885096 (Version 1)
Quarter: 2014Q1

REPORT INFORMATION
  Report Type: Spontaneous
  Country: US (occurrence: US)
  Receive Date: 20140210
  Receipt Date: 20140210
  Transmission Date: 20141002
  Serious: No
  Sender: FDA-Public Use
  Company Number: US-BAYER-2014-015710

PATIENT
  Age: 24 Year
  Sex: Female
  Weight: 84 kg

DRUGS (1)
  1. ALEVE TABLET [Suspect]
     Indication: MIGRAINE
     Dosage: 1-2 DF, PRN
     Route: 048
     Dates: start: 201305

REACTIONS (2)
  - Therapeutic response unexpected [None]
  - Off label use [None]
